FAERS Safety Report 16210462 (Version 2)
Quarter: 2020Q1

REPORT INFORMATION
  Report Type: Report from Study
  Country: DE (occurrence: DE)
  Receive Date: 20190418
  Receipt Date: 20200220
  Transmission Date: 20200409
  Serious: Yes (Hospitalization)
  Sender: FDA-Public Use
  Company Number: PHHY2019DE089160

PATIENT
  Sex: Female
  Weight: 72 kg

DRUGS (19)
  1. COSENTYX [Suspect]
     Active Substance: SECUKINUMAB
     Dosage: 150 MG, ONCE/SINGLE
     Route: 065
     Dates: start: 20180214
  2. COSENTYX [Suspect]
     Active Substance: SECUKINUMAB
     Dosage: 150 MG, ONCE/SINGLE
     Route: 065
     Dates: start: 20180221
  3. COSENTYX [Suspect]
     Active Substance: SECUKINUMAB
     Dosage: 150 MG, ONCE/SINGLE
     Route: 065
     Dates: start: 20180507
  4. COSENTYX [Suspect]
     Active Substance: SECUKINUMAB
     Dosage: 150 MG, ONCE/SINGLE
     Route: 065
     Dates: start: 20190107
  5. XARELTO [Concomitant]
     Active Substance: RIVAROXABAN
     Indication: PULMONARY EMBOLISM
  6. COSENTYX [Suspect]
     Active Substance: SECUKINUMAB
     Dosage: 150 MG, ONCE/SINGLE
     Route: 065
     Dates: start: 20181007
  7. COSENTYX [Suspect]
     Active Substance: SECUKINUMAB
     Dosage: 150 MG, ONCE/SINGLE
     Route: 065
     Dates: start: 20181207
  8. COSENTYX [Suspect]
     Active Substance: SECUKINUMAB
     Dosage: 150 MG, ONCE/SINGLE
     Route: 065
     Dates: start: 20180407
  9. COSENTYX [Suspect]
     Active Substance: SECUKINUMAB
     Dosage: 150 MG, ONCE/SINGLE
     Route: 065
     Dates: start: 20181107
  10. COSENTYX [Suspect]
     Active Substance: SECUKINUMAB
     Dosage: 150 MG, ONCE/SINGLE
     Route: 065
     Dates: start: 20180707
  11. COSENTYX [Suspect]
     Active Substance: SECUKINUMAB
     Dosage: 150 MG, ONCE/SINGLE
     Route: 065
     Dates: start: 20180228
  12. XARELTO [Concomitant]
     Active Substance: RIVAROXABAN
     Indication: DEEP VEIN THROMBOSIS
     Dosage: 20 MG, QD
     Route: 048
  13. COSENTYX [Suspect]
     Active Substance: SECUKINUMAB
     Dosage: 150 MG, ONCE/SINGLE
     Route: 065
     Dates: start: 20180807
  14. COSENTYX [Suspect]
     Active Substance: SECUKINUMAB
     Dosage: 150 MG, ONCE/SINGLE
     Route: 065
     Dates: start: 20180907
  15. COSENTYX [Suspect]
     Active Substance: SECUKINUMAB
     Indication: PSORIATIC ARTHROPATHY
     Dosage: 150 MG, ONCE/SINGLE
     Route: 065
     Dates: start: 20180207
  16. COSENTYX [Suspect]
     Active Substance: SECUKINUMAB
     Dosage: 150 MG, ONCE/SINGLE
     Route: 065
     Dates: start: 20180307
  17. COSENTYX [Suspect]
     Active Substance: SECUKINUMAB
     Dosage: 150 MG, ONCE/SINGLE
     Route: 065
     Dates: start: 20180607
  18. COSENTYX [Suspect]
     Active Substance: SECUKINUMAB
     Dosage: 150 MG, ONCE/SINGLE
     Route: 065
     Dates: start: 20190207
  19. COTRIM FORTE [Concomitant]
     Active Substance: SULFAMETHOXAZOLE\TRIMETHOPRIM
     Indication: CYSTITIS NONINFECTIVE
     Dosage: 500 MG, BID
     Route: 048
     Dates: start: 201812

REACTIONS (4)
  - Vitamin D deficiency [Unknown]
  - Skin laceration [Recovered/Resolved]
  - Gastroenteritis [Recovered/Resolved]
  - Circulatory collapse [Recovered/Resolved]

NARRATIVE: CASE EVENT DATE: 201903
